FAERS Safety Report 6028684-5 (Version None)
Quarter: 2009Q1

REPORT INFORMATION
  Report Type: 
  Country: None (occurrence: None)
  Receive Date: 20090106
  Receipt Date: 20081205
  Transmission Date: 20090719
  Serious: Yes (Other)
  Sender: FDA-Public Use
  Company Number: FR-PFIZER INC-2008155451

PATIENT

DRUGS (1)
  1. CHAMPIX [Suspect]
     Dosage: UNK

REACTIONS (2)
  - CARDIAC DISORDER [None]
  - PALPITATIONS [None]
